FAERS Safety Report 25621749 (Version 1)
Quarter: 2025Q3

REPORT INFORMATION
  Report Type: Spontaneous
  Country: US (occurrence: US)
  Receive Date: 20250730
  Receipt Date: 20250730
  Transmission Date: 20251020
  Serious: Yes (Hospitalization, Other)
  Sender: SANOFI AVENTIS
  Company Number: US-SA-2025SA219962

PATIENT
  Age: 62 Year
  Sex: Male

DRUGS (1)
  1. DUPIXENT [Suspect]
     Active Substance: DUPILUMAB
     Dosage: 300 MG, QW
     Route: 058
     Dates: end: 2025

REACTIONS (11)
  - Asthenia [Unknown]
  - Gait disturbance [Unknown]
  - Pericarditis [Unknown]
  - Myocarditis [Unknown]
  - Pericardial effusion [Unknown]
  - Pleural effusion [Unknown]
  - Lyme disease [Unknown]
  - Dehydration [Unknown]
  - Fatigue [Unknown]
  - Granulocytosis [Unknown]
  - Myalgia [Unknown]

NARRATIVE: CASE EVENT DATE: 20250101
